FAERS Safety Report 17085455 (Version 1)
Quarter: 2019Q4

REPORT INFORMATION
  Report Type: Report from Study
  Country: None (occurrence: GT)
  Receive Date: 20191128
  Receipt Date: 20191128
  Transmission Date: 20200122
  Serious: Yes (Death)
  Sender: FDA-Public Use
  Company Number: GT-ABBVIE-19K-069-3172183-00

PATIENT
  Age: 53 Year
  Sex: Male

DRUGS (1)
  1. ZEMPLAR [Suspect]
     Active Substance: PARICALCITOL
     Indication: HYPERPARATHYROIDISM SECONDARY
     Route: 042
     Dates: start: 20170601, end: 20191101

REACTIONS (2)
  - Chronic kidney disease [Fatal]
  - Hyperparathyroidism secondary [Fatal]

NARRATIVE: CASE EVENT DATE: 20191101
